FAERS Safety Report 19347620 (Version 2)
Quarter: 2021Q3

REPORT INFORMATION
  Report Type: Spontaneous
  Country: US (occurrence: US)
  Receive Date: 20210531
  Receipt Date: 20210714
  Transmission Date: 20211014
  Serious: Yes (Hospitalization, Other)
  Sender: FDA-Public Use
  Company Number: US-AUROBINDO-AUR-APL-2021-021111

PATIENT
  Age: 55 Year
  Sex: Male

DRUGS (2)
  1. RIBAVIRIN. [Suspect]
     Active Substance: RIBAVIRIN
     Indication: HEPATITIS C
     Dosage: 1000 MILLIGRAM, ONCE A DAY
     Route: 065
  2. PEGINTERFERON ALFA?2A. [Suspect]
     Active Substance: PEGINTERFERON ALFA-2A
     Indication: HEPATITIS C
     Dosage: 180 MILLIGRAM PER LITRE, EVERY WEEK
     Route: 065

REACTIONS (10)
  - Facial asymmetry [Recovering/Resolving]
  - Ageusia [Recovering/Resolving]
  - Hypoaesthesia [Recovering/Resolving]
  - Neuralgia [Recovering/Resolving]
  - Dysphagia [Recovering/Resolving]
  - Back pain [Recovering/Resolving]
  - Diplegia [Recovering/Resolving]
  - Muscular weakness [Recovering/Resolving]
  - Guillain-Barre syndrome [Recovering/Resolving]
  - Bell^s palsy [Recovering/Resolving]
